FAERS Safety Report 16028756 (Version 1)
Quarter: 2019Q1

REPORT INFORMATION
  Report Type: Spontaneous
  Country: US (occurrence: US)
  Receive Date: 20190204
  Receipt Date: 20190204
  Transmission Date: 20190418
  Serious: No
  Sender: FDA-Public Use
  Company Number: None

PATIENT
  Age: 55 Year
  Sex: Male

DRUGS (1)
  1. HARVONI [Suspect]
     Active Substance: LEDIPASVIR\SOFOSBUVIR
     Dates: start: 20190102

REACTIONS (3)
  - Abdominal discomfort [None]
  - Gastrooesophageal reflux disease [None]
  - Depression [None]

NARRATIVE: CASE EVENT DATE: 20190204
